FAERS Safety Report 17734187 (Version 2)
Quarter: 2020Q2

REPORT INFORMATION
  Report Type: Spontaneous
  Country: US (occurrence: US)
  Receive Date: 20200501
  Receipt Date: 20200624
  Transmission Date: 20200714
  Serious: No
  Sender: FDA-Public Use
  Company Number: US-PFIZER INC-2017403340

PATIENT
  Age: 10 Year
  Sex: Female

DRUGS (2)
  1. GENOTROPIN [Suspect]
     Active Substance: SOMATROPIN
     Dosage: 2.4 MG, DAILY
  2. GENOTROPIN [Suspect]
     Active Substance: SOMATROPIN
     Dosage: 1.8 MG, 1X/DAY (7 DAYS/WEEK)
     Dates: start: 201612

REACTIONS (3)
  - Growth disorder [Unknown]
  - Incorrect dose administered [Unknown]
  - Device issue [Unknown]
